FAERS Safety Report 5204518-3 (Version None)
Quarter: 2007Q1

REPORT INFORMATION
  Report Type: 
  Country: None (occurrence: None)
  Receive Date: 20070110
  Receipt Date: 20060420
  Transmission Date: 20070707
  Serious: Yes (Other)
  Sender: FDA-Public Use
  Company Number: US-BRISTOL-MYERS SQUIBB COMPANY-13355250

PATIENT
  Sex: Female

DRUGS (4)
  1. ABILIFY [Suspect]
     Indication: BIPOLAR DISORDER
     Dates: start: 20050501
  2. ABILIFY [Suspect]
     Indication: PANIC DISORDER
     Dates: start: 20050501
  3. TOPAMAX [Concomitant]
  4. CELEXA [Concomitant]

REACTIONS (2)
  - CEREBROVASCULAR ACCIDENT [None]
  - EXTRAPYRAMIDAL DISORDER [None]
